FAERS Safety Report 8394759-9 (Version None)
Quarter: 2012Q1

REPORT INFORMATION
  Report Type: 
  Country: None (occurrence: None)
  Receive Date: 20120323
  Receipt Date: 20110822
  Transmission Date: 20120608
  Serious: Yes (Hospitalization)
  Sender: FDA-Public Use
  Company Number: 163-21880-11050417

PATIENT
  Age: 84 Year
  Sex: Female

DRUGS (6)
  1. DEXAMETHASONE [Concomitant]
  2. REVLIMID [Suspect]
     Indication: MULTIPLE MYELOMA
     Dosage: 25 MG, DAILY FOR 21/28 DAYS, PO
     Route: 048
     Dates: start: 20110408
  3. MEGESTROL ACETATE [Concomitant]
  4. ALPRAZOLAM [Concomitant]
  5. DIPYRIDAMOLE [Concomitant]
  6. AMIODARONE HCL [Concomitant]

REACTIONS (2)
  - CARDIAC FAILURE CONGESTIVE [None]
  - FLUID RETENTION [None]
